FAERS Safety Report 10227232 (Version 1)
Quarter: 2014Q2

REPORT INFORMATION
  Report Type: Spontaneous
  Country: US (occurrence: None)
  Receive Date: 20140606
  Receipt Date: 20140606
  Transmission Date: 20141212
  Serious: Yes (Hospitalization)
  Sender: FDA-Public Use
  Company Number: 14AE024

PATIENT
  Age: 67 Year
  Sex: Female
  Weight: 81.65 kg

DRUGS (7)
  1. EQUATE ASPIRIN 81 MG ENTERIC COATED YELLOW TABLETS [Suspect]
     Indication: CARDIOVASCULAR DISORDER
     Dosage: COUPLE OF MONTHS
     Route: 048
  2. EQUATE ASPIRIN 81 MG ENTERIC COATED YELLOW TABLETS [Suspect]
     Indication: PAIN
     Dosage: COUPLE OF MONTHS
     Route: 048
  3. EQUATE ASPIRIN 81 MG ENTERIC COATED YELLOW TABLETS [Suspect]
     Indication: PAIN
     Dosage: COUPLE OF MONTHS
     Route: 048
  4. SYNTHROID [Concomitant]
  5. PRAVASTATIN [Concomitant]
  6. MULTI-VITAMINS (CALCIUM PANTOTHENATE, FOLIC ACID, VITAMINS NOS) [Concomitant]
  7. 81 MG ASPIRIN [Concomitant]

REACTIONS (6)
  - Headache [None]
  - Dizziness [None]
  - Hypoaesthesia [None]
  - Product commingling [None]
  - Product substitution issue [None]
  - Product quality issue [None]
